FAERS Safety Report 13286888 (Version 7)
Quarter: 2017Q2

REPORT INFORMATION
  Report Type: Spontaneous
  Country: TW (occurrence: TW)
  Receive Date: 20170302
  Receipt Date: 20170630
  Transmission Date: 20170830
  Serious: Yes (Other)
  Sender: FDA-Public Use
  Company Number: TW-AMGEN-TWNSP2016172596

PATIENT
  Age: 68 Year
  Sex: Male

DRUGS (3)
  1. ARHEUMA [Concomitant]
     Dosage: 20 MG, DAILY
     Dates: start: 20170123
  2. ENBREL [Suspect]
     Active Substance: ETANERCEPT
     Indication: PSORIATIC ARTHROPATHY
     Dosage: 25 MG, WEEKLY
     Route: 058
     Dates: start: 20140116
  3. MTX [Concomitant]
     Active Substance: METHOTREXATE SODIUM
     Dosage: 6 DF, WEEKLY
     Route: 048
     Dates: start: 20120405, end: 20170123

REACTIONS (8)
  - Sputum discoloured [Not Recovered/Not Resolved]
  - Bronchiectasis [Not Recovered/Not Resolved]
  - Viral upper respiratory tract infection [Recovering/Resolving]
  - Disease recurrence [Recovering/Resolving]
  - Psoriasis [Recovering/Resolving]
  - C-reactive protein increased [Not Recovered/Not Resolved]
  - Lung infiltration [Not Recovered/Not Resolved]
  - Dizziness [Not Recovered/Not Resolved]

NARRATIVE: CASE EVENT DATE: 20170123
